FAERS Safety Report 8518297-5 (Version None)
Quarter: 2012Q3

REPORT INFORMATION
  Report Type: 
  Country: None (occurrence: None)
  Receive Date: 20120718
  Receipt Date: 20120113
  Transmission Date: 20120928
  Serious: No
  Sender: FDA-Public Use
  Company Number: US-BRISTOL-MYERS SQUIBB COMPANY-16337578

PATIENT
  Sex: Male

DRUGS (2)
  1. COUMADIN [Suspect]
     Dosage: COUMADIN 5MG 1DF: 8-10MG PER DAY(TOTAL)
  2. WARFARIN SODIUM [Suspect]
     Dosage: WARFARIN 3MG 1DF: 8-10MG PER DAY(TOTAL)

REACTIONS (1)
  - NASOPHARYNGITIS [None]
